FAERS Safety Report 4869357-1 (Version None)
Quarter: 2005Q4

REPORT INFORMATION
  Report Type: 
  Country: None (occurrence: None)
  Receive Date: 20051227
  Receipt Date: 20051227
  Transmission Date: 20060501
  Serious: Yes (Other)
  Sender: FDA-Public Use
  Company Number: None

PATIENT
  Age: 83 Year
  Sex: Female
  Weight: 58.0604 kg

DRUGS (6)
  1. ELMIRON [Suspect]
     Indication: CYSTITIS
     Dosage: 100 MG 3X /DAY ORAL
     Route: 048
     Dates: start: 20041101
  2. DEPAKOTE [Concomitant]
  3. AMBIEN [Concomitant]
  4. FORADIL [Concomitant]
  5. CENTRUM SILVER MULTIVITAMIN [Concomitant]
  6. CALCIUM GLUCONATE [Concomitant]

REACTIONS (4)
  - DRUG INEFFECTIVE [None]
  - PHARMACEUTICAL PRODUCT COMPLAINT [None]
  - SOMNOLENCE [None]
  - URINE COLOUR ABNORMAL [None]
